FAERS Safety Report 24260184 (Version 2)
Quarter: 2024Q4

REPORT INFORMATION
  Report Type: Spontaneous
  Country: US (occurrence: US)
  Receive Date: 20240828
  Receipt Date: 20241218
  Transmission Date: 20250115
  Serious: No
  Sender: SANOFI AVENTIS
  Company Number: US-SA-SAC20240821001201

PATIENT
  Age: 13 Year
  Sex: Female

DRUGS (2)
  1. DUPIXENT [Suspect]
     Active Substance: DUPILUMAB
     Indication: Dermatitis atopic
     Dosage: 400 MG, 1X
     Route: 058
     Dates: start: 20240323, end: 20240323
  2. DUPIXENT [Suspect]
     Active Substance: DUPILUMAB
     Dosage: 200 MG, QOW
     Route: 058
     Dates: start: 202404, end: 202410

REACTIONS (7)
  - Eczema [Unknown]
  - Inappropriate schedule of product administration [Unknown]
  - Rebound eczema [Unknown]
  - Skin ulcer [Unknown]
  - Scab [Unknown]
  - Rash [Unknown]
  - Perioral dermatitis [Unknown]

NARRATIVE: CASE EVENT DATE: 20240101
